FAERS Safety Report 5071218-2 (Version None)
Quarter: 2006Q3

REPORT INFORMATION
  Report Type: 
  Country: None (occurrence: None)
  Receive Date: 20060804
  Receipt Date: 20060725
  Transmission Date: 20061208
  Serious: Yes (Other)
  Sender: FDA-Public Use
  Company Number: 2006UW15086

PATIENT
  Age: 50 Year
  Sex: Male

DRUGS (2)
  1. SEROQUEL [Suspect]
     Indication: PANIC DISORDER
     Dosage: 50 TO 100 MG
     Route: 048
  2. RISPERDAL [Concomitant]
     Indication: PANIC DISORDER
     Route: 048

REACTIONS (3)
  - BACK PAIN [None]
  - CHROMATURIA [None]
  - RENAL PAIN [None]
